FAERS Safety Report 6942734-0 (Version None)
Quarter: 2010Q3

REPORT INFORMATION
  Report Type: 
  Country: None (occurrence: None)
  Receive Date: 20100826
  Receipt Date: 20100819
  Transmission Date: 20110219
  Serious: Yes (Life-Threatening, Hospitalization, Other)
  Sender: FDA-Public Use
  Company Number: FR-BAYER-201036568GPV

PATIENT
  Age: 43 Year
  Sex: Female
  Weight: 66 kg

DRUGS (2)
  1. MIRENA [Suspect]
     Indication: CONTRACEPTION
     Route: 015
     Dates: start: 20030108, end: 20080122
  2. MIRENA [Suspect]
     Route: 015
     Dates: start: 20080122, end: 20100420

REACTIONS (2)
  - BREAST CANCER METASTATIC [None]
  - BREAST MASS [None]
